FAERS Safety Report 5535887-2 (Version None)
Quarter: 2007Q4

REPORT INFORMATION
  Report Type: 
  Country: None (occurrence: None)
  Receive Date: 20071206
  Receipt Date: 20070621
  Transmission Date: 20080405
  Serious: Yes (Hospitalization)
  Sender: FDA-Public Use
  Company Number: US-AMGEN-STX229024

PATIENT
  Sex: Female

DRUGS (14)
  1. ENBREL [Suspect]
     Indication: RHEUMATOID ARTHRITIS
     Route: 058
     Dates: start: 20070201
  2. KLOR-CON [Suspect]
  3. METHOTREXATE [Concomitant]
     Route: 048
     Dates: start: 20070301
  4. PREDNISONE TAB [Concomitant]
  5. TAMOXIFEN CITRATE [Concomitant]
  6. NEURONTIN [Concomitant]
  7. ZELNORM [Concomitant]
  8. EFFEXOR [Concomitant]
  9. CELEBREX [Concomitant]
  10. DITROPAN [Concomitant]
  11. ZIAC [Concomitant]
  12. VITAMIN E [Concomitant]
  13. VITAMIN D [Concomitant]
  14. FOLIC ACID [Concomitant]

REACTIONS (3)
  - CEREBELLAR INFARCTION [None]
  - HYPERTENSION [None]
  - INJECTION SITE REACTION [None]
